FAERS Safety Report 12321463 (Version 2)
Quarter: 2016Q2

REPORT INFORMATION
  Report Type: Spontaneous
  Country: JP (occurrence: JP)
  Receive Date: 20160502
  Receipt Date: 20160520
  Transmission Date: 20160815
  Serious: Yes (Hospitalization, Other)
  Sender: FDA-Public Use
  Company Number: JP-UCBSA-2016014935

PATIENT
  Age: 82 Year
  Sex: Female

DRUGS (6)
  1. FOSPHENYTOIN SODIUM. [Concomitant]
     Active Substance: FOSPHENYTOIN SODIUM
     Indication: SEIZURE
     Dosage: 1125 MG DAILY
  2. RIVOTRIL [Concomitant]
     Active Substance: CLONAZEPAM
     Indication: SEIZURE
     Dosage: UNK
     Route: 048
  3. E KEPPRA [Suspect]
     Active Substance: LEVETIRACETAM
     Indication: SEIZURE
     Dosage: 1000 MG DAILY
     Route: 048
  4. E KEPPRA [Suspect]
     Active Substance: LEVETIRACETAM
     Dosage: 500 MG DAILY
     Route: 041
     Dates: start: 20160419, end: 2016
  5. RIVOTRIL [Concomitant]
     Active Substance: CLONAZEPAM
     Dosage: UNK
     Route: 048
  6. HORIZON [Concomitant]
     Active Substance: DIAZEPAM
     Indication: SEIZURE
     Dosage: 20 MG DAILY

REACTIONS (2)
  - Electrocardiogram QT prolonged [Unknown]
  - Seizure [Unknown]

NARRATIVE: CASE EVENT DATE: 20160419
